FAERS Safety Report 7165365-9 (Version None)
Quarter: 2010Q4

REPORT INFORMATION
  Report Type: 
  Country: None (occurrence: None)
  Receive Date: 20101215
  Receipt Date: 20100105
  Transmission Date: 20110411
  Serious: No
  Sender: FDA-Public Use
  Company Number: US-AMGEN-KDL383761

PATIENT

DRUGS (15)
  1. ENBREL [Suspect]
     Indication: PRODUCT USED FOR UNKNOWN INDICATION
     Dosage: 50 MG, QWK
     Route: 058
  2. SERTRALINE [Concomitant]
     Dosage: 100 MG, UNK
  3. FENOFIBRATE [Concomitant]
     Dosage: 145 MG, UNK
  4. LISINOPRIL [Concomitant]
     Dosage: 40 MG, UNK
  5. ALENDRONATE SODIUM [Concomitant]
     Dosage: 70 MG, UNK
  6. PRAVASTAN [Concomitant]
     Dosage: 40 MG, UNK
  7. FEXOFENADINE HCL [Concomitant]
     Dosage: 180 MG, UNK
  8. HYDROCHLOROTHIAZIDE [Concomitant]
     Dosage: 12.5 MG, UNK
  9. NOVOLIN 70/30 [Concomitant]
     Dosage: UNK UNK, UNK
  10. GLIPIZIDE [Concomitant]
     Dosage: 5 MG, UNK
  11. METOPROLOL [Concomitant]
     Dosage: 25 MG, UNK
  12. FELODIPINE [Concomitant]
     Dosage: 10 MG, UNK
  13. ASCORBIC ACID [Concomitant]
     Dosage: 500 MG, UNK
  14. RANITIDINE [Concomitant]
     Dosage: 150 MG, UNK
  15. LEVOTHYROXINE SODIUM [Concomitant]
     Dosage: 25 MG, UNK

REACTIONS (1)
  - INJECTION SITE PAIN [None]
